FAERS Safety Report 7022548-6 (Version None)
Quarter: 2010Q3

REPORT INFORMATION
  Report Type: 
  Country: None (occurrence: None)
  Receive Date: 20100930
  Receipt Date: 20060315
  Transmission Date: 20110219
  Serious: No
  Sender: FDA-Public Use
  Company Number: ES-EISAI INC.-RS005872-E

PATIENT
  Age: 24 Year
  Sex: Female

DRUGS (1)
  1. PARIET (RABEPRAZOLE) [Suspect]
     Route: 048

REACTIONS (4)
  - ERYTHEMA [None]
  - MALAISE [None]
  - NAUSEA [None]
  - PRURITUS [None]
